FAERS Safety Report 9692352 (Version 2)
Quarter: 2013Q4

REPORT INFORMATION
  Report Type: Spontaneous
  Country: US (occurrence: US)
  Receive Date: 20131118
  Receipt Date: 20131121
  Transmission Date: 20140711
  Serious: No
  Sender: FDA-Public Use
  Company Number: US-PFIZER INC-2013323894

PATIENT
  Age: 30 Year
  Sex: Female
  Weight: 90.7 kg

DRUGS (2)
  1. ADVIL COLD AND SINUS [Suspect]
     Indication: SINUS HEADACHE
     Dosage: UNK, ONCE A DAY
     Route: 048
     Dates: start: 20131104, end: 20131105
  2. ADVIL COLD AND SINUS [Suspect]
     Indication: RHINORRHOEA

REACTIONS (7)
  - Abdominal discomfort [Unknown]
  - Insomnia [Unknown]
  - Feeling abnormal [Recovered/Resolved]
  - Anger [Recovered/Resolved]
  - Impatience [Recovered/Resolved]
  - Condition aggravated [Recovered/Resolved]
  - Hot flush [Recovered/Resolved]
